FAERS Safety Report 7028451-X (Version None)
Quarter: 2010Q4

REPORT INFORMATION
  Report Type: 
  Country: None (occurrence: None)
  Receive Date: 20101001
  Receipt Date: 20101001
  Transmission Date: 20110411
  Serious: Yes (Hospitalization)
  Sender: FDA-Public Use
  Company Number: None

PATIENT
  Age: 63 Year
  Sex: Male
  Weight: 130.63 kg

DRUGS (2)
  1. SULFAMETHOXAZOLE AND TRIMETHOPRIM [Suspect]
     Indication: CELLULITIS
     Dosage: 1 TAB BID PO
     Route: 048
     Dates: start: 20100914, end: 20100927
  2. SULFAMETHOXAZOLE AND TRIMETHOPRIM [Suspect]
     Indication: SKIN ULCER
     Dosage: 1 TAB BID PO
     Route: 048
     Dates: start: 20100914, end: 20100927

REACTIONS (3)
  - ANGIOEDEMA [None]
  - DERMATITIS ALLERGIC [None]
  - DRUG HYPERSENSITIVITY [None]
